FAERS Safety Report 7680700-0 (Version None)
Quarter: 2011Q3

REPORT INFORMATION
  Report Type: 
  Country: None (occurrence: None)
  Receive Date: 20110812
  Receipt Date: 20110807
  Transmission Date: 20111222
  Serious: Yes (Hospitalization, Other)
  Sender: FDA-Public Use
  Company Number: US-SANOFI-AVENTIS-2011SA050841

PATIENT
  Age: 76 Year
  Sex: Female

DRUGS (2)
  1. GLYBURIDE [Suspect]
     Indication: DIABETES MELLITUS
     Route: 065
  2. ANTIHYPERTENSIVES [Concomitant]

REACTIONS (6)
  - VISUAL IMPAIRMENT [None]
  - TRANSIENT ISCHAEMIC ATTACK [None]
  - SPEECH DISORDER [None]
  - BLOOD PRESSURE INCREASED [None]
  - MEMORY IMPAIRMENT [None]
  - BLOOD GLUCOSE INCREASED [None]
